FAERS Safety Report 12182204 (Version 1)
Quarter: 2016Q1

REPORT INFORMATION
  Report Type: Spontaneous
  Country: SE (occurrence: SE)
  Receive Date: 20160316
  Receipt Date: 20160316
  Transmission Date: 20160526
  Serious: Yes (Hospitalization, Other)
  Sender: FDA-Public Use
  Company Number: SE-ROCHE-1719974

PATIENT
  Age: 36 Year
  Sex: Female
  Weight: 74 kg

DRUGS (1)
  1. MABTHERA [Suspect]
     Active Substance: RITUXIMAB
     Indication: IGA NEPHROPATHY
     Dosage: ON 09/MAR/2016, RECEIVED SECOND DOSE (500 MG)
     Route: 042
     Dates: start: 20160224

REACTIONS (4)
  - C-reactive protein increased [Recovered/Resolved]
  - IgA nephropathy [Recovered/Resolved]
  - Off label use [Unknown]
  - Haematuria [Recovered/Resolved]

NARRATIVE: CASE EVENT DATE: 20160224
